FAERS Safety Report 14163538 (Version 1)
Quarter: 2017Q4

REPORT INFORMATION
  Report Type: Report from Study
  Country: CA (occurrence: CA)
  Receive Date: 20171107
  Receipt Date: 20171107
  Transmission Date: 20180321
  Serious: Yes (Other)
  Sender: FDA-Public Use
  Company Number: CA-IPSEN BIOPHARMACEUTICALS, INC.-2017-09674

PATIENT
  Age: 74 Year
  Sex: Female

DRUGS (5)
  1. ASA [Concomitant]
     Active Substance: ASPIRIN
  2. ESOMEPRAZOLE [Concomitant]
     Active Substance: ESOMEPRAZOLE
  3. ANASTROZOLE. [Concomitant]
     Active Substance: ANASTROZOLE
  4. EFFEXOR [Concomitant]
     Active Substance: VENLAFAXINE HYDROCHLORIDE
  5. SOMATULINE AUTOGEL 120MG [Suspect]
     Active Substance: LANREOTIDE ACETATE
     Indication: NEUROENDOCRINE TUMOUR
     Dosage: 120 MG
     Route: 058
     Dates: start: 20170306

REACTIONS (13)
  - Gallbladder enlargement [Unknown]
  - Biliary dilatation [Unknown]
  - Pancreatic atrophy [Unknown]
  - Fatigue [Unknown]
  - Respiration abnormal [Unknown]
  - Drug effect decreased [Unknown]
  - Constipation [Not Recovered/Not Resolved]
  - Renal cyst [Unknown]
  - Hepatic cyst [Unknown]
  - Constipation [Unknown]
  - Hyperplastic cholecystopathy [Unknown]
  - Pancreatic neoplasm [Unknown]
  - Pain [Unknown]

NARRATIVE: CASE EVENT DATE: 2017
